FAERS Safety Report 7262336-9 (Version None)
Quarter: 2011Q1

REPORT INFORMATION
  Report Type: 
  Country: None (occurrence: None)
  Receive Date: 20110130
  Receipt Date: 20101127
  Transmission Date: 20110831
  Serious: No
  Sender: FDA-Public Use
  Company Number: US-ABBOTT-10P-163-0687989-00

PATIENT
  Age: 56 Year
  Sex: Female

DRUGS (4)
  1. HUMIRA [Suspect]
     Dates: start: 20100701
  2. VITAMIN B-12 [Concomitant]
     Indication: PRODUCT USED FOR UNKNOWN INDICATION
  3. HUMIRA [Suspect]
     Indication: CROHN'S DISEASE
     Dosage: 40MG QOW, DOSE INTERRUPTED
     Dates: start: 20100825, end: 20101103
  4. UNKNOWN MEDICATION [Concomitant]
     Indication: NEURALGIA
     Dosage: DR. DISCONTINUING AND START PT. ON PAIN MED.

REACTIONS (5)
  - CONTUSION [None]
  - NASOPHARYNGITIS [None]
  - BURNING SENSATION [None]
  - OEDEMA PERIPHERAL [None]
  - MALAISE [None]
